FAERS Safety Report 5955872-6 (Version None)
Quarter: 2008Q4

REPORT INFORMATION
  Report Type: 
  Country: None (occurrence: None)
  Receive Date: 20081112
  Receipt Date: 20081028
  Transmission Date: 20090506
  Serious: Yes (Other)
  Sender: FDA-Public Use
  Company Number: CLOF-1000323

PATIENT
  Age: 13 Year
  Sex: Male
  Weight: 41 kg

DRUGS (6)
  1. CLOLAR [Suspect]
     Indication: ACUTE LYMPHOCYTIC LEUKAEMIA
     Dosage: 27 MG, QDX3, INTRAVENOUS
     Route: 042
     Dates: start: 20081015, end: 20081017
  2. CYCLOPHOSPHAMIDE [Suspect]
     Indication: ACUTE LYMPHOCYTIC LEUKAEMIA
     Dosage: 270 MG, QD, INTRAVENOUS, 540 MG,QD, IV
     Route: 042
     Dates: start: 20081014, end: 20081015
  3. CYCLOPHOSPHAMIDE [Suspect]
     Indication: ACUTE LYMPHOCYTIC LEUKAEMIA
     Dosage: 270 MG, QD, INTRAVENOUS, 540 MG,QD, IV
     Route: 042
     Dates: start: 20081016, end: 20081017
  4. ALLOPURINOL [Suspect]
     Indication: HYPERURICAEMIA
     Dosage: 200 MG, BID, ORAL
     Route: 048
     Dates: start: 20071002, end: 20081021
  5. ALLOPURINOL [Suspect]
     Indication: PROPHYLAXIS
     Dosage: 200 MG, BID, ORAL
     Route: 048
     Dates: start: 20071002, end: 20081021
  6. ALLOPURINOL [Suspect]
     Dosage: 540 MG, QD, INTRAVENOUS
     Route: 042
     Dates: start: 20081016, end: 20081017

REACTIONS (2)
  - CONDITION AGGRAVATED [None]
  - THROMBOCYTOPENIA [None]
